FAERS Safety Report 7999900-5 (Version None)
Quarter: 2011Q4

REPORT INFORMATION
  Report Type: 
  Country: None (occurrence: None)
  Receive Date: 20111222
  Receipt Date: 20111213
  Transmission Date: 20120403
  Serious: No
  Sender: FDA-Public Use
  Company Number: US-BIOGENIDEC-2011BI047218

PATIENT
  Sex: Female

DRUGS (4)
  1. TYSABRI [Suspect]
     Route: 042
     Dates: start: 20080103, end: 20101006
  2. TYSABRI [Suspect]
     Route: 042
     Dates: start: 20110411, end: 20110411
  3. TYSABRI [Suspect]
     Indication: MULTIPLE SCLEROSIS
     Route: 042
     Dates: start: 20111209
  4. RITALIN [Concomitant]
     Indication: DISTURBANCE IN ATTENTION
     Dates: start: 20050101

REACTIONS (4)
  - MEMORY IMPAIRMENT [None]
  - APHASIA [None]
  - DISTURBANCE IN ATTENTION [None]
  - ATTENTION DEFICIT/HYPERACTIVITY DISORDER [None]
